FAERS Safety Report 16305917 (Version 1)
Quarter: 2019Q2

REPORT INFORMATION
  Report Type: Spontaneous
  Country: GB (occurrence: GB)
  Receive Date: 20190513
  Receipt Date: 20190513
  Transmission Date: 20190711
  Serious: Yes (Hospitalization)
  Sender: FDA-Public Use
  Company Number: GB-BAYER-2019-093765

PATIENT
  Age: 72 Year
  Sex: Female
  Weight: 75 kg

DRUGS (1)
  1. GADOVIST [Suspect]
     Active Substance: GADOBUTROL
     Dosage: 7.5 ML, UNK

REACTIONS (4)
  - Urticaria [Recovered/Resolved]
  - Muscle tightness [Recovered/Resolved]
  - Swelling [Recovered/Resolved]
  - Blood pressure decreased [Recovered/Resolved]
